FAERS Safety Report 23318356 (Version 1)
Quarter: 2023Q4

REPORT INFORMATION
  Report Type: Report from Study
  Country: IT (occurrence: IT)
  Receive Date: 20231220
  Receipt Date: 20231220
  Transmission Date: 20240110
  Serious: Yes (Hospitalization)
  Sender: FDA-Public Use
  Company Number: IT-ABBVIE-5549287

PATIENT
  Age: 60 Year
  Sex: Male

DRUGS (3)
  1. CARBIDOPA\LEVODOPA [Suspect]
     Active Substance: CARBIDOPA\LEVODOPA
     Indication: Parkinson^s disease
     Dosage: TOTAL DAILY DOSE (MG): 1728; PUMP SETTING: MD: 8,4+3 CR: 4,8 (15H), ED: 3
     Route: 050
     Dates: start: 20210621
  2. CARBIDOPA\LEVODOPA [Suspect]
     Active Substance: CARBIDOPA\LEVODOPA
  3. NEUPRO [Suspect]
     Active Substance: ROTIGOTINE
     Indication: Product used for unknown indication
     Dosage: 4 MG AT NIGHT
     Route: 065

REACTIONS (1)
  - Compulsive shopping [Not Recovered/Not Resolved]

NARRATIVE: CASE EVENT DATE: 20231214
